FAERS Safety Report 16609325 (Version 1)
Quarter: 2019Q3

REPORT INFORMATION
  Report Type: Report from Study
  Country: IN (occurrence: IN)
  Receive Date: 20190722
  Receipt Date: 20190722
  Transmission Date: 20191004
  Serious: Yes (Life-Threatening)
  Sender: FDA-Public Use
  Company Number: IN-RECRO GAINESVILLE LLC-REPH-2019-000130

PATIENT
  Age: 26 Year
  Sex: Male

DRUGS (1)
  1. VERAPAMIL HYDROCHLORIDE SUSTAINED RELEASE [Suspect]
     Active Substance: VERAPAMIL HYDROCHLORIDE
     Indication: SUPRAVENTRICULAR TACHYCARDIA
     Dosage: 5 MILLIGRAM BOLUS, ONE TIME DOSE
     Route: 042

REACTIONS (2)
  - Respiratory arrest [Recovered/Resolved]
  - Off label use [Recovered/Resolved]
